FAERS Safety Report 12317591 (Version 1)
Quarter: 2016Q2

REPORT INFORMATION
  Report Type: Spontaneous
  Country: US (occurrence: US)
  Receive Date: 20160429
  Receipt Date: 20160429
  Transmission Date: 20160815
  Serious: No
  Sender: FDA-Public Use
  Company Number: US-BAYER-2016-070738

PATIENT
  Age: 6 Year
  Sex: Male
  Weight: 52 kg

DRUGS (3)
  1. FLUTICASONE PROPIONATE. [Concomitant]
     Active Substance: FLUTICASONE PROPIONATE
     Indication: SEASONAL ALLERGY
     Dosage: UNK
     Route: 045
     Dates: start: 20160318
  2. ZYRTEC [Concomitant]
     Active Substance: CETIRIZINE HYDROCHLORIDE
     Dosage: UNK
     Dates: start: 20160405
  3. CHILDREN CLARITIN ALLERGY [Suspect]
     Active Substance: LORATADINE
     Indication: SEASONAL ALLERGY
     Dosage: 1 DF, QD DURING THE ALLERGY SEASON FOR ABOUT 2 YEARS
     Route: 048
     Dates: start: 2014, end: 20160404

REACTIONS (6)
  - Energy increased [Recovered/Resolved]
  - Impulse-control disorder [Recovered/Resolved]
  - Energy increased [Recovered/Resolved]
  - Psychomotor hyperactivity [Recovered/Resolved]
  - Impulse-control disorder [Recovered/Resolved]
  - Psychomotor hyperactivity [Recovered/Resolved]

NARRATIVE: CASE EVENT DATE: 201509
